FAERS Safety Report 9523947 (Version 1)
Quarter: 2013Q1

REPORT INFORMATION
  Report Type: Spontaneous
  Country: US (occurrence: None)
  Receive Date: 20130305
  Receipt Date: 20130305
  Transmission Date: 20140127
  Serious: Yes (Hospitalization)
  Sender: FDA-Public Use
  Company Number: 163-21880-12063771

PATIENT
  Age: 46 Year
  Sex: Male
  Weight: 122.47 kg

DRUGS (2)
  1. REVLIMID [Suspect]
     Indication: PLASMA CELL MYELOMA
     Dosage: 25 MG, DAILY X 14 DAYS, PO
     Route: 048
     Dates: start: 20120606
  2. VALACYCLOVIR (VALACICLOVIR) (UNKNOWN)? [Concomitant]

REACTIONS (1)
  - Full blood count decreased [None]
